FAERS Safety Report 22598354 (Version 2)
Quarter: 2023Q2

REPORT INFORMATION
  Report Type: Report from Study
  Country: US (occurrence: US)
  Receive Date: 20230614
  Receipt Date: 20230618
  Transmission Date: 20230721
  Serious: Yes (Death)
  Sender: FDA-Public Use
  Company Number: US-ABBVIE-5288683

PATIENT
  Sex: Male

DRUGS (24)
  1. VENCLEXTA [Suspect]
     Active Substance: VENETOCLAX
     Indication: Chronic lymphocytic leukaemia
     Dosage: LAST ADMIN DATE- 2023
     Route: 048
     Dates: start: 20230324
  2. VENCLEXTA [Suspect]
     Active Substance: VENETOCLAX
     Indication: Chronic lymphocytic leukaemia
     Dosage: FORM STRENGTH: 100MG
     Route: 048
     Dates: start: 20220315
  3. BACLOFEN [Concomitant]
     Active Substance: BACLOFEN
     Indication: Muscle spasms
     Dosage: TIME INTERVAL: 0.33333333 DAYS: FORM STRENGTH: 10MG
     Route: 048
     Dates: start: 20200311
  4. AMMONIUM LACTATE [Concomitant]
     Active Substance: AMMONIUM LACTATE
     Indication: Product used for unknown indication
     Dosage: 12% EXTERNAL CREAM
     Dates: start: 20210415
  5. BENZONATATE [Concomitant]
     Active Substance: BENZONATATE
     Indication: Product used for unknown indication
     Dosage: FORM STRENGTH: 200MG?FREQUENCY TEXT: TAKE 1 CAP 2-3 DAYS
     Route: 048
     Dates: start: 20220324
  6. PROMETHAZINE HYDROCHLORIDE [Concomitant]
     Active Substance: PROMETHAZINE HYDROCHLORIDE
     Indication: Product used for unknown indication
     Dosage: FORM STRENGTH: 25MG?FREQUENCY TEXT: 1 TABLET EVERY 4 TO 6 HOURS
     Route: 048
     Dates: start: 20220324
  7. QUETIAPINE FUMARATE [Concomitant]
     Active Substance: QUETIAPINE FUMARATE
     Indication: Product used for unknown indication
     Dosage: FORM STRENGTH: 25MG?STOP DATE TEXT: 1 TABLET BY MOUTH EVERY DAY
     Route: 048
     Dates: start: 20211122
  8. CIPRO [Concomitant]
     Active Substance: CIPROFLOXACIN HYDROCHLORIDE
     Indication: Product used for unknown indication
     Dosage: FORM STRENGTH: 500MG
     Route: 048
     Dates: start: 20220509
  9. DULOXETINE HYDROCHLORIDE [Concomitant]
     Active Substance: DULOXETINE HYDROCHLORIDE
     Indication: Product used for unknown indication
     Dosage: 30 MG CAPSULE DELAYED RELEASE PARTICLES?FORM STRENGTH: 30MG
     Route: 048
     Dates: start: 20201204
  10. DULOXETINE HYDROCHLORIDE [Concomitant]
     Active Substance: DULOXETINE HYDROCHLORIDE
     Indication: Product used for unknown indication
     Dosage: 60 MG CAPSULE DELAYED RELEASE PARTICLES?FORM STRENGTH: 60MG?FREQUENCY TEXT: TAKE 60 MG IN THE MOR...
     Route: 048
     Dates: start: 20201204
  11. IPRATROPIUM BROMIDE [Concomitant]
     Active Substance: IPRATROPIUM BROMIDE\IPRATROPIUM BROMIDE ANHYDROUS
     Indication: Product used for unknown indication
     Dosage: TIME INTERVAL: 0.33333333 DAYS: 0.03 % NASAL SOLUTION
     Route: 045
     Dates: start: 20190529
  12. CYCLOBENZAPRINE HYDROCHLORIDE [Concomitant]
     Active Substance: CYCLOBENZAPRINE HYDROCHLORIDE
     Indication: Product used for unknown indication
     Dosage: TIME INTERVAL: 0.33333333 DAYS: FORM STRENGTH: 5MG?DURATION TEXT: TAKE 1 TABLET 3 TIMES DAILY
     Route: 048
     Dates: start: 20220526
  13. AMITRIPTYLINE HYDROCHLORIDE [Concomitant]
     Active Substance: AMITRIPTYLINE HYDROCHLORIDE
     Indication: Product used for unknown indication
     Dosage: FORM STRENGTH: 10MG
     Route: 048
     Dates: start: 20210412
  14. FLUTICASONE PROPIONATE [Concomitant]
     Active Substance: FLUTICASONE PROPIONATE
     Indication: Product used for unknown indication
     Dosage: 50 MCG/ACT NASAL SUSPENSION
     Route: 045
     Dates: start: 20220520
  15. DIAZEPAM [Concomitant]
     Active Substance: DIAZEPAM
     Indication: Product used for unknown indication
     Dosage: FORM STRENGTH: 5MG
     Route: 048
     Dates: start: 20210527
  16. ATROPINE\DIPHENOXYLATE [Concomitant]
     Active Substance: ATROPINE\DIPHENOXYLATE
     Indication: Product used for unknown indication
     Dosage: 2.5-0.025 MG TABLET?DURATION TEXT: TAKE 2 TABLET 4 TIMES DAILY AS NEEDED
     Route: 048
     Dates: start: 20220407
  17. DRONABINOL [Concomitant]
     Active Substance: DRONABINOL
     Indication: Product used for unknown indication
     Dosage: TIME INTERVAL: 0.33333333 DAYS: FORM STRENGTH: 5MG
     Route: 048
     Dates: start: 20220324
  18. ONDANSETRON [Concomitant]
     Active Substance: ONDANSETRON
     Indication: Nausea
     Dosage: 4 MG ORAL TABLET DISINTEGRATING?FORM STRENGTH: 4MG?FREQUENCY TEXT: TAK 1 TABLET 4 TIMES DAILY PRN...
     Route: 048
  19. PROPRANOLOL HYDROCHLORIDE [Concomitant]
     Active Substance: PROPRANOLOL HYDROCHLORIDE
     Indication: Product used for unknown indication
     Dosage: FORM STRENGTH: 40MG?DURATION TEXT: TAKE 1 TABLET 2 TIMES DAILY
     Route: 048
     Dates: start: 20210108
  20. VITAMIN D [Concomitant]
     Active Substance: VITAMIN D NOS
     Indication: Product used for unknown indication
     Dosage: FORM STRENGTH: 25MG?DURATION TEXT: TAKE 1 TABLET DAILY
     Route: 048
     Dates: start: 20210108
  21. SILDENAFIL CITRATE [Concomitant]
     Active Substance: SILDENAFIL CITRATE
     Indication: Product used for unknown indication
     Dosage: FORM STRENGTH: 100MG?DURATION TEXT: ONE HOUR PRIOR TO NEED
     Route: 048
     Dates: start: 20230110
  22. MUPIROCIN [Concomitant]
     Active Substance: MUPIROCIN
     Indication: Product used for unknown indication
     Dosage: 2% EXTERNAL OINTMENT?FORM STRENGTH: 2PERCENT
     Dates: start: 20220616
  23. LORAZEPAM [Concomitant]
     Active Substance: LORAZEPAM
     Indication: Product used for unknown indication
     Dosage: TIME INTERVAL: 0.33333333 DAYS: 0.5 MG TABLET
     Route: 048
     Dates: start: 20230109
  24. ALLOPURINOL [Concomitant]
     Active Substance: ALLOPURINOL
     Indication: Product used for unknown indication
     Route: 048
     Dates: start: 20210203

REACTIONS (1)
  - Death [Fatal]
